FAERS Safety Report 10008006 (Version 1)
Quarter: 2014Q1

REPORT INFORMATION
  Report Type: Spontaneous
  Country: CH (occurrence: CH)
  Receive Date: 20140313
  Receipt Date: 20140313
  Transmission Date: 20141002
  Serious: Yes (Hospitalization)
  Sender: FDA-Public Use
  Company Number: PHHY2014CH028157

PATIENT
  Age: 66 Year
  Sex: Female

DRUGS (14)
  1. SINTROM [Suspect]
     Dosage: UNK UKN, UNK
     Route: 048
     Dates: start: 201308, end: 20131231
  2. SINTROM [Interacting]
     Dosage: UNK UKN, UNK
     Dates: start: 20140114
  3. METOPROLOL [Suspect]
     Dosage: 12.5 MG, QD
     Route: 048
  4. DIGOXIN [Suspect]
     Dosage: 0.125 MG,  4 DAYS A WEEK,
     Route: 048
     Dates: start: 201308, end: 20140209
  5. DIGOXIN [Suspect]
     Dosage: 0.125 MG 5 DAYS A WEEK
     Route: 048
     Dates: start: 20140117
  6. DIGOXIN [Suspect]
     Dosage: 0.125 MG 5 DAYS A WEEK
     Route: 048
     Dates: start: 20140117
  7. CORDARONE [Interacting]
     Indication: ARRHYTHMIA SUPRAVENTRICULAR
     Dosage: 200 MG, QD
     Route: 048
  8. LISITRIL [Concomitant]
     Dosage: 10 MG IN THE MORNING AND 5 MG IN THE EVENING
     Route: 048
     Dates: end: 20140209
  9. ALDACTONE [Concomitant]
     Dosage: 12.5 MG, QD
     Route: 048
     Dates: start: 201308, end: 20140209
  10. TOREM [Concomitant]
     Dosage: 15 MG, QD
     Route: 048
     Dates: end: 20140209
  11. EZETROL [Concomitant]
     Dosage: 10 MG, QD
     Route: 048
  12. ELTROXIN [Concomitant]
     Indication: POSTPARTUM HYPOPITUITARISM
     Dosage: 0.5 MG, MONDAY TO THURSDAY
     Route: 048
  13. ELTROXIN [Concomitant]
     Dosage: 0.1 MG, FRIDAY TO SUNDAY
  14. HYDROCORTISONE [Concomitant]
     Indication: POSTPARTUM HYPOPITUITARISM
     Dosage: 15 MG IN THE MORNING, 10 MG AT NOON
     Route: 048

REACTIONS (7)
  - Syncope [Recovered/Resolved]
  - Asthenia [Unknown]
  - Electrocardiogram ST segment abnormal [Unknown]
  - Subdural haematoma [Unknown]
  - Nausea [Recovered/Resolved]
  - Vomiting [Recovered/Resolved]
  - Overdose [Recovered/Resolved]
